FAERS Safety Report 18937088 (Version 1)
Quarter: 2021Q1

REPORT INFORMATION
  Report Type: Report from Study
  Country: US (occurrence: US)
  Receive Date: 20210224
  Receipt Date: 20210224
  Transmission Date: 20210420
  Serious: Yes (Other)
  Sender: FDA-Public Use
  Company Number: US-UCBSA-2021007575

PATIENT
  Age: 65 Year
  Sex: Female

DRUGS (2)
  1. ROTIGOTINE [Suspect]
     Active Substance: ROTIGOTINE
     Indication: RESTLESS LEGS SYNDROME
     Dosage: 4 MILLIGRAM, ONCE DAILY (QD)
     Dates: start: 2019
  2. ROTIGOTINE [Suspect]
     Active Substance: ROTIGOTINE
     Dosage: 2 MILLIGRAM, ONCE DAILY (QD)

REACTIONS (3)
  - Ankle fracture [Not Recovered/Not Resolved]
  - Off label use [Unknown]
  - Sleep attacks [Not Recovered/Not Resolved]

NARRATIVE: CASE EVENT DATE: 20201101
